FAERS Safety Report 17552544 (Version 1)
Quarter: 2020Q1

REPORT INFORMATION
  Report Type: Report from Study
  Country: None (occurrence: BR)
  Receive Date: 20200318
  Receipt Date: 20200318
  Transmission Date: 20200409
  Serious: Yes (Hospitalization, Other)
  Sender: FDA-Public Use
  Company Number: BR-ABBVIE-20K-020-3317823-00

PATIENT
  Sex: Female

DRUGS (3)
  1. DIOVAN [Concomitant]
     Active Substance: VALSARTAN
     Indication: HYPERTENSION
  2. HUMIRA [Suspect]
     Active Substance: ADALIMUMAB
     Indication: RHEUMATOID ARTHRITIS
     Route: 058
     Dates: start: 20190706
  3. ZANIDIP [Concomitant]
     Active Substance: LERCANIDIPINE HYDROCHLORIDE
     Indication: HYPERTENSION

REACTIONS (9)
  - Chills [Recovered/Resolved]
  - Papilloma viral infection [Unknown]
  - Cough [Recovered/Resolved]
  - Tongue disorder [Unknown]
  - Immunodeficiency [Unknown]
  - Lymphadenopathy [Recovered/Resolved]
  - Tongue neoplasm malignant stage unspecified [Unknown]
  - Pain [Recovered/Resolved]
  - Nausea [Unknown]
